FAERS Safety Report 17950275 (Version 1)
Quarter: 2020Q2

REPORT INFORMATION
  Report Type: Spontaneous
  Country: US (occurrence: US)
  Receive Date: 20200626
  Receipt Date: 20200626
  Transmission Date: 20200714
  Serious: No
  Sender: FDA-Public Use
  Company Number: US-GLAXOSMITHKLINE-US2020AMR108313

PATIENT
  Age: 44 Year
  Sex: Female

DRUGS (1)
  1. LAMICTAL [Suspect]
     Active Substance: LAMOTRIGINE
     Indication: EPILEPSY
     Dosage: 7 DF, QD (3 TABLETS IN MORNING AND 4 AT BEDTIME)
     Route: 065
     Dates: start: 2007

REACTIONS (2)
  - Overdose [Unknown]
  - Brain operation [Unknown]

NARRATIVE: CASE EVENT DATE: 201209
